FAERS Safety Report 6639437-9 (Version None)
Quarter: 2010Q2

REPORT INFORMATION
  Report Type: 
  Country: None (occurrence: None)
  Receive Date: 20100318
  Receipt Date: 20100305
  Transmission Date: 20101027
  Serious: Yes (Other)
  Sender: FDA-Public Use
  Company Number: US-RB-004678-10

PATIENT
  Age: 4 Year
  Sex: Female
  Weight: 18 kg

DRUGS (1)
  1. MUCINEX [Suspect]
     Dosage: INGESTED 3 TO 5 PACKETS OF THE PRODUCT
     Route: 048
     Dates: start: 20100305

REACTIONS (4)
  - ACCIDENTAL OVERDOSE [None]
  - FATIGUE [None]
  - MOANING [None]
  - SOMNOLENCE [None]
